FAERS Safety Report 16358472 (Version 1)
Quarter: 2019Q2

REPORT INFORMATION
  Report Type: Report from Study
  Country: US (occurrence: US)
  Receive Date: 20190527
  Receipt Date: 20190527
  Transmission Date: 20190711
  Serious: Yes (Death)
  Sender: FDA-Public Use
  Company Number: US-PFIZER INC-2019224222

PATIENT
  Age: 71 Year
  Sex: Female

DRUGS (4)
  1. ABRAXANE [Suspect]
     Active Substance: PACLITAXEL
     Indication: PANCREATIC CARCINOMA
     Dosage: UNK
     Dates: start: 20190401, end: 20190506
  2. AVELUMAB [Suspect]
     Active Substance: AVELUMAB
     Indication: PANCREATIC CARCINOMA
     Dosage: UNK
     Dates: start: 20190401, end: 20190429
  3. HYDROXYCHLOROQUINE [Suspect]
     Active Substance: HYDROXYCHLOROQUINE
     Indication: PANCREATIC CARCINOMA
     Dosage: UNK
     Dates: start: 20190401, end: 20190508
  4. GEMCITABINE HYDROCHLORIDE. [Suspect]
     Active Substance: GEMCITABINE HYDROCHLORIDE
     Indication: PANCREATIC CARCINOMA
     Dosage: UNK
     Dates: start: 20190401, end: 20190506

REACTIONS (1)
  - Cardiac arrest [Fatal]

NARRATIVE: CASE EVENT DATE: 20190508
